FAERS Safety Report 6058950-9 (Version None)
Quarter: 2009Q1

REPORT INFORMATION
  Report Type: 
  Country: None (occurrence: None)
  Receive Date: 20090130
  Receipt Date: 20090123
  Transmission Date: 20090719
  Serious: Yes (Hospitalization)
  Sender: FDA-Public Use
  Company Number: A0729296A

PATIENT
  Age: 61 Year
  Sex: Male
  Weight: 109.1 kg

DRUGS (1)
  1. AVANDIA [Suspect]
     Dates: start: 20031001, end: 20050601

REACTIONS (1)
  - ACUTE MYOCARDIAL INFARCTION [None]
